FAERS Safety Report 12678217 (Version 1)
Quarter: 2016Q3

REPORT INFORMATION
  Report Type: Spontaneous
  Country: US (occurrence: US)
  Receive Date: 20160823
  Receipt Date: 20160823
  Transmission Date: 20161109
  Serious: No
  Sender: FDA-Public Use
  Company Number: US-BAYER-2016-158229

PATIENT
  Age: 83 Year
  Sex: Female
  Weight: 47.62 kg

DRUGS (2)
  1. SKYLA [Suspect]
     Active Substance: LEVONORGESTREL
     Indication: HOT FLUSH
     Dosage: 14 MCG/24HR, CONT
     Route: 015
     Dates: start: 201404, end: 2014
  2. SKYLA [Suspect]
     Active Substance: LEVONORGESTREL
     Indication: MENOPAUSAL SYMPTOMS

REACTIONS (2)
  - Drug ineffective for unapproved indication [None]
  - Off label use [None]
